FAERS Safety Report 6000132-0 (Version None)
Quarter: 2008Q4

REPORT INFORMATION
  Report Type: 
  Country: None (occurrence: None)
  Receive Date: 20081215
  Receipt Date: 20071219
  Transmission Date: 20090506
  Serious: No
  Sender: FDA-Public Use
  Company Number: US-AMGEN-KDL238336

PATIENT
  Sex: Female

DRUGS (1)
  1. ENBREL [Suspect]
     Indication: RHEUMATOID ARTHRITIS
     Dates: start: 20070201, end: 20070315

REACTIONS (18)
  - ALOPECIA [None]
  - ASTHMA [None]
  - BACK PAIN [None]
  - BENIGN NEOPLASM OF SPINAL CORD [None]
  - BRONCHITIS [None]
  - CHILLS [None]
  - DIARRHOEA [None]
  - DYSPEPSIA [None]
  - DYSPNOEA [None]
  - FUNGAL INFECTION [None]
  - GASTROINTESTINAL ULCER HAEMORRHAGE [None]
  - HEADACHE [None]
  - HYPERHIDROSIS [None]
  - NAIL DISORDER [None]
  - OESOPHAGEAL CANDIDIASIS [None]
  - PYREXIA [None]
  - SEPSIS [None]
  - SKIN EXFOLIATION [None]
